FAERS Safety Report 6109550-3 (Version None)
Quarter: 2009Q1

REPORT INFORMATION
  Report Type: 
  Country: None (occurrence: None)
  Receive Date: 20090306
  Receipt Date: 20090224
  Transmission Date: 20090719
  Serious: Yes (Hospitalization)
  Sender: FDA-Public Use
  Company Number: 2009PV037681

PATIENT
  Age: 80 Year
  Sex: Female
  Weight: 72.5755 kg

DRUGS (17)
  1. SYMLIN [Suspect]
     Indication: TYPE 2 DIABETES MELLITUS
     Dosage: 60 MCG; TID; SC
     Route: 058
     Dates: start: 20070801
  2. LANTUS [Concomitant]
  3. NOVOLOG [Concomitant]
  4. NITROGLYCERIN [Concomitant]
  5. ACTONEL [Concomitant]
  6. ARIMIDEX [Concomitant]
  7. ULTRAM [Concomitant]
  8. PREVACID [Concomitant]
  9. FERROUS SULFATE TAB [Concomitant]
  10. COREG [Concomitant]
  11. ZOCOR [Concomitant]
  12. LANOXIN [Concomitant]
  13. PAXIL [Concomitant]
  14. LASIX [Concomitant]
  15. POTASSIUM CHLORIDE [Concomitant]
  16. COUMADIN [Concomitant]
  17. CIPROFLOXACIN HCL [Concomitant]

REACTIONS (4)
  - DEHYDRATION [None]
  - INJECTION SITE IRRITATION [None]
  - INJECTION SITE PAIN [None]
  - URINARY TRACT INFECTION [None]
